FAERS Safety Report 20103698 (Version 1)
Quarter: 2021Q4

REPORT INFORMATION
  Report Type: Spontaneous
  Country: US (occurrence: None)
  Receive Date: 20211123
  Receipt Date: 20211123
  Transmission Date: 20220304
  Serious: Yes (Hospitalization)
  Sender: FDA-Public Use
  Company Number: None

PATIENT
  Age: 64 Year
  Sex: Male
  Weight: 66.06 kg

DRUGS (12)
  1. HYCAMTIN [Suspect]
     Active Substance: TOPOTECAN HYDROCHLORIDE
     Indication: Lung carcinoma cell type unspecified stage 0
     Dosage: OTHER FREQUENCY : QDX5DAYS EVERY 21D;?
     Route: 048
     Dates: start: 20211012
  2. ALBUTEROL 2.5MG/3ML [Concomitant]
  3. COMBIVENT RESPIMAT 20-100MCG [Concomitant]
  4. IBUPROFEN [Concomitant]
     Active Substance: IBUPROFEN
  5. LIPITOR [Concomitant]
     Active Substance: ATORVASTATIN CALCIUM
  6. PROCHLORPERAZINE 10MG [Concomitant]
  7. SYMBICORT 160-4.5MCG [Concomitant]
  8. ZOLOFT [Concomitant]
     Active Substance: SERTRALINE HYDROCHLORIDE
  9. ELIQUIS [Concomitant]
     Active Substance: APIXABAN
  10. PREDNISONE [Concomitant]
     Active Substance: PREDNISONE
  11. MIRTAZAPINE [Concomitant]
     Active Substance: MIRTAZAPINE
  12. VITAMINS [Concomitant]
     Active Substance: VITAMINS

REACTIONS (1)
  - Swollen tongue [None]

NARRATIVE: CASE EVENT DATE: 20211123
